FAERS Safety Report 12617651 (Version 5)
Quarter: 2020Q1

REPORT INFORMATION
  Report Type: Spontaneous
  Country: US (occurrence: US)
  Receive Date: 20160803
  Receipt Date: 20200312
  Transmission Date: 20200409
  Serious: No
  Sender: FDA-Public Use
  Company Number: US-PFIZER INC-2016337650

PATIENT
  Age: 50 Year
  Sex: Female
  Weight: 77.98 kg

DRUGS (2)
  1. NEOSPORIN [Suspect]
     Active Substance: BACITRACIN ZINC\NEOMYCIN SULFATE\POLYMYXIN B SULFATE
     Dosage: UNK
  2. LISINOPRIL. [Suspect]
     Active Substance: LISINOPRIL
     Dosage: UNK

REACTIONS (4)
  - Throat tightness [Unknown]
  - Urticaria [Unknown]
  - Tongue discomfort [Unknown]
  - Drug hypersensitivity [Unknown]
